FAERS Safety Report 10735615 (Version 1)
Quarter: 2015Q1

REPORT INFORMATION
  Report Type: Spontaneous
  Country: GB (occurrence: None)
  Receive Date: 20150121
  Receipt Date: 20150121
  Transmission Date: 20150721
  Serious: Yes (Death, Life-Threatening)
  Sender: FDA-Public Use
  Company Number: FK201500298

PATIENT
  Age: 69 Year
  Sex: Female

DRUGS (12)
  1. CANDESARTAN [Concomitant]
     Active Substance: CANDESARTAN
  2. DEXAMETHASONE. [Concomitant]
     Active Substance: DEXAMETHASONE
  3. CYCLIZINE [Concomitant]
     Active Substance: CYCLIZINE
  4. FUROSEMIDE. [Concomitant]
     Active Substance: FUROSEMIDE
  5. ATORVASTATIN [Suspect]
     Active Substance: ATORVASTATIN
  6. BISOPROLOL [Concomitant]
     Active Substance: BISOPROLOL
  7. LANSOPRAZOLE. [Concomitant]
     Active Substance: LANSOPRAZOLE
  8. LEVOTHYROXINE [Concomitant]
     Active Substance: LEVOTHYROXINE
  9. TRIMETHOPRIM. [Concomitant]
     Active Substance: TRIMETHOPRIM
  10. OCTREOTIDE ACETATE. [Suspect]
     Active Substance: OCTREOTIDE ACETATE
     Indication: NEOPLASM MALIGNANT
     Route: 058
     Dates: start: 20141023, end: 20141025
  11. PARACETAMOL [Concomitant]
     Active Substance: ACETAMINOPHEN
  12. MORPHINE SULFATE. [Concomitant]
     Active Substance: MORPHINE SULFATE

REACTIONS (6)
  - No therapeutic response [None]
  - Cerebral infarction [None]
  - Off label use [None]
  - Vaginal discharge [None]
  - Condition aggravated [None]
  - Transient ischaemic attack [None]

NARRATIVE: CASE EVENT DATE: 20141024
